FAERS Safety Report 5892676-7 (Version None)
Quarter: 2008Q3

REPORT INFORMATION
  Report Type: 
  Country: None (occurrence: None)
  Receive Date: 20080923
  Receipt Date: 20080916
  Transmission Date: 20090109
  Serious: Yes (Hospitalization)
  Sender: FDA-Public Use
  Company Number: PHHY2008JP21947

PATIENT
  Age: 60 Year
  Sex: Male

DRUGS (7)
  1. SYMMETREL [Suspect]
     Indication: PARKINSON'S DISEASE
     Route: 048
  2. COMTAN [Suspect]
     Indication: PARKINSON'S DISEASE
     Route: 048
  3. CABASER [Concomitant]
  4. PRAMIPEXOLE DIHYDROCHLORIDE [Concomitant]
  5. PERMAX [Concomitant]
  6. CARBIDOPA + LEVODOPA [Concomitant]
  7. FP [Concomitant]

REACTIONS (2)
  - HYPONATRAEMIA [None]
  - PYREXIA [None]
